FAERS Safety Report 7368585-3 (Version None)
Quarter: 2011Q1

REPORT INFORMATION
  Report Type: 
  Country: None (occurrence: None)
  Receive Date: 20110323
  Receipt Date: 20110318
  Transmission Date: 20110831
  Serious: Yes (Hospitalization)
  Sender: FDA-Public Use
  Company Number: AU-SANOFI-AVENTIS-2011SA016599

PATIENT
  Age: 32 Year
  Sex: Female
  Weight: 100 kg

DRUGS (8)
  1. CLEXANE [Suspect]
     Indication: PULMONARY EMBOLISM
     Route: 058
     Dates: start: 20110301, end: 20110304
  2. WARFARIN [Suspect]
     Route: 048
  3. DOXYCYCLINE [Suspect]
     Indication: ACNE
     Dates: start: 20090801
  4. VENLAFAXINE [Suspect]
     Indication: DEPRESSION
     Dates: start: 20100101
  5. SOMAC [Suspect]
     Dates: start: 20100401
  6. OXYCONTIN [Suspect]
     Indication: PAIN
     Dates: start: 20110301
  7. WARFARIN [Suspect]
     Indication: PULMONARY EMBOLISM
     Route: 048
     Dates: start: 20090601
  8. VENTOLIN [Concomitant]
     Indication: ASTHMA

REACTIONS (1)
  - LIVER FUNCTION TEST ABNORMAL [None]
